FAERS Safety Report 6698172-1 (Version None)
Quarter: 2010Q2

REPORT INFORMATION
  Report Type: 
  Country: None (occurrence: None)
  Receive Date: 20100427
  Receipt Date: 20100415
  Transmission Date: 20101027
  Serious: Yes (Hospitalization)
  Sender: FDA-Public Use
  Company Number: JP-GENZYME-FABR-1001324

PATIENT
  Sex: Female
  Weight: 40 kg

DRUGS (3)
  1. FABRAZYME [Suspect]
     Indication: FABRY'S DISEASE
     Dosage: 1 MG/KG, Q2W
     Route: 042
     Dates: start: 20100408
  2. FABRAZYME [Suspect]
     Dosage: 0.437 MG/KG, Q4W
     Route: 042
     Dates: start: 20091112
  3. FABRAZYME [Suspect]
     Dosage: 1 MG/KG, Q2W
     Route: 042
     Dates: start: 20050125, end: 20091022

REACTIONS (2)
  - PLEURAL EFFUSION [None]
  - RENAL FAILURE [None]
